FAERS Safety Report 21501388 (Version 1)
Quarter: 2022Q4

REPORT INFORMATION
  Report Type: Spontaneous
  Country: US (occurrence: US)
  Receive Date: 20221025
  Receipt Date: 20221025
  Transmission Date: 20230113
  Serious: Yes (Hospitalization, Other)
  Sender: FDA-Public Use
  Company Number: US-BAXTER-2022BAX022351

PATIENT
  Age: 71 Year
  Sex: Female

DRUGS (6)
  1. DOXORUBICIN [Suspect]
     Active Substance: DOXORUBICIN
     Indication: T-cell lymphoma
     Dosage: 1-3 CYCLES (CHP REGIMEN)
     Route: 065
     Dates: start: 202205
  2. CYCLOPHOSPHAMIDE [Suspect]
     Active Substance: CYCLOPHOSPHAMIDE
     Indication: T-cell lymphoma
     Dosage: 1-3 CYCLES (CHP REGIMEN)
     Route: 065
     Dates: start: 202205
  3. CYCLOPHOSPHAMIDE [Suspect]
     Active Substance: CYCLOPHOSPHAMIDE
     Dosage: (DOSE RE-INTRODUCED)
     Route: 065
     Dates: start: 2022
  4. PREDNISONE [Suspect]
     Active Substance: PREDNISONE
     Indication: T-cell lymphoma
     Dosage: 1-3 CYCLES (CHP REGIMEN)
     Route: 065
     Dates: start: 202205
  5. ADCETRIS [Suspect]
     Active Substance: BRENTUXIMAB VEDOTIN
     Indication: T-cell lymphoma
     Dosage: 1.8 MG/KG 114 MG, 1-3 CYCLES
     Route: 065
     Dates: start: 202205
  6. ADCETRIS [Suspect]
     Active Substance: BRENTUXIMAB VEDOTIN
     Dosage: 1.8 MG/KG 114 MG (DOSE RE-INTRODUCED- NOT DECREASED)
     Route: 065
     Dates: start: 2022

REACTIONS (5)
  - Pneumonitis [Recovered/Resolved]
  - Neuropathy peripheral [Not Recovered/Not Resolved]
  - Ataxia [Not Recovered/Not Resolved]
  - Balance disorder [Not Recovered/Not Resolved]
  - Gait inability [Unknown]

NARRATIVE: CASE EVENT DATE: 20220623
